FAERS Safety Report 9305314 (Version 1)
Quarter: 2013Q2

REPORT INFORMATION
  Report Type: Spontaneous
  Country: FR (occurrence: None)
  Receive Date: 20130520
  Receipt Date: 20130520
  Transmission Date: 20140414
  Serious: Yes (Hospitalization)
  Sender: FDA-Public Use
  Company Number: TPA2013A02359

PATIENT
  Age: 73 Year
  Sex: Female

DRUGS (3)
  1. ADENURIC (FEBUXOSTAT) [Suspect]
     Indication: PRODUCT USED FOR UNKNOWN INDICATION
     Route: 048
     Dates: start: 20130301, end: 20130307
  2. COLCHIMAX [Suspect]
     Indication: PRODUCT USED FOR UNKNOWN INDICATION
     Dosage: 1 DF 1 IN 1 D
     Route: 048
     Dates: start: 20130301, end: 20130307
  3. INEGY [Suspect]
     Indication: PRODUCT USED FOR UNKNOWN INDICATION
     Route: 048
     Dates: end: 20130307

REACTIONS (5)
  - Drug interaction [None]
  - Hepatocellular injury [None]
  - Rhabdomyolysis [None]
  - Renal failure acute [None]
  - Gait disturbance [None]
